FAERS Safety Report 4758937-X (Version None)
Quarter: 2005Q3

REPORT INFORMATION
  Report Type: 
  Country: None (occurrence: None)
  Receive Date: 20050831
  Receipt Date: 20050826
  Transmission Date: 20060218
  Serious: Yes (Death, Hospitalization)
  Sender: FDA-Public Use
  Company Number: GXKR2003FR00527

PATIENT
  Age: 36 Year
  Sex: Female

DRUGS (2)
  1. PARACETAMOL (NGX) (PARACETAMOL) UNKNOWN [Suspect]
     Dosage: ONCE/SINGLE
  2. KETOPROFEN [Suspect]
     Dosage: 1.5 G ONCE/SINGLE

REACTIONS (15)
  - ALPHA TUMOUR NECROSIS FACTOR INCREASED [None]
  - ANURIA [None]
  - BLOOD CREATINE PHOSPHOKINASE INCREASED [None]
  - BLOOD LACTIC ACID INCREASED [None]
  - ENCEPHALOPATHY [None]
  - ENDOTHELIN INCREASED [None]
  - GASTROINTESTINAL ISCHAEMIA [None]
  - HEPATIC FAILURE [None]
  - INTENTIONAL MISUSE [None]
  - INTERLEUKIN LEVEL INCREASED [None]
  - OVERDOSE [None]
  - PANCREATITIS NECROTISING [None]
  - SHOCK [None]
  - SYSTEMIC INFLAMMATORY RESPONSE SYNDROME [None]
  - VASOCONSTRICTION [None]
